FAERS Safety Report 20034579 (Version 1)
Quarter: 2021Q4

REPORT INFORMATION
  Report Type: Spontaneous
  Country: US (occurrence: None)
  Receive Date: 20211104
  Receipt Date: 20211104
  Transmission Date: 20220303
  Serious: Yes (Other)
  Sender: FDA-Public Use
  Company Number: 2021A788129

PATIENT
  Age: 72 Year
  Sex: Male

DRUGS (11)
  1. OLAPARIB [Suspect]
     Active Substance: OLAPARIB
     Indication: Prostate cancer metastatic
     Route: 048
     Dates: start: 20201109
  2. ENZALUTAMIDE [Concomitant]
     Active Substance: ENZALUTAMIDE
  3. LEUPROLIDE [Concomitant]
     Active Substance: LEUPROLIDE
  4. BICALUTAMIDE [Concomitant]
     Active Substance: BICALUTAMIDE
     Dates: start: 20170227, end: 20170531
  5. ABIRATERONE ACETATE [Concomitant]
     Active Substance: ABIRATERONE ACETATE
     Dates: start: 20190312, end: 20190807
  6. DAROLUTAMIDE [Concomitant]
     Active Substance: DAROLUTAMIDE
     Dates: start: 20200609, end: 20201026
  7. DOCETAXEL [Concomitant]
     Active Substance: DOCETAXEL
     Dosage: X 5 CYCLES
     Dates: start: 20210512
  8. ENZALUTAMIDE [Concomitant]
     Active Substance: ENZALUTAMIDE
  9. TRICOM [Concomitant]
     Dates: start: 20150620, end: 20160620
  10. RADIUM [Concomitant]
     Active Substance: RADIUM
     Dosage: X 3 CYCLES
     Dates: start: 20210420
  11. DORA ARM B [Concomitant]
     Dates: start: 20210126

REACTIONS (2)
  - Malignant neoplasm progression [Unknown]
  - Metastases to bone [Unknown]
